FAERS Safety Report 13544390 (Version 2)
Quarter: 2017Q2

REPORT INFORMATION
  Report Type: Spontaneous
  Country: JP (occurrence: JP)
  Receive Date: 20170515
  Receipt Date: 20170526
  Transmission Date: 20170830
  Serious: Yes (Hospitalization, Other)
  Sender: FDA-Public Use
  Company Number: JP-VIFOR (INTERNATIONAL) INC.-VIT-2017-04963

PATIENT
  Age: 72 Year
  Sex: Female

DRUGS (2)
  1. EPOGIN S [Suspect]
     Active Substance: ERYTHROPOIETIN
     Indication: PRODUCT USED FOR UNKNOWN INDICATION
  2. MIRCERA [Suspect]
     Active Substance: METHOXY POLYETHYLENE GLYCOL-EPOETIN BETA
     Indication: NEPHROGENIC ANAEMIA

REACTIONS (8)
  - Cerebral infarction [Unknown]
  - Intestinal ischaemia [Unknown]
  - C-reactive protein increased [Unknown]
  - Weight increased [Unknown]
  - Peritonitis [Unknown]
  - Loss of personal independence in daily activities [Unknown]
  - Hypophagia [Recovered/Resolved]
  - Malnutrition [Recovered/Resolved]

NARRATIVE: CASE EVENT DATE: 2015
